FAERS Safety Report 20612858 (Version 1)
Quarter: 2022Q1

REPORT INFORMATION
  Report Type: Report from Study
  Country: BR (occurrence: BR)
  Receive Date: 20220318
  Receipt Date: 20220318
  Transmission Date: 20220424
  Serious: Yes (Hospitalization)
  Sender: FDA-Public Use
  Company Number: BR-BIOGEN-2022BI01105013

PATIENT
  Age: 21 Year
  Sex: Female

DRUGS (6)
  1. TECFIDERA [Suspect]
     Active Substance: DIMETHYL FUMARATE
     Indication: Multiple sclerosis
     Route: 048
     Dates: start: 202112, end: 20220125
  2. TECFIDERA [Suspect]
     Active Substance: DIMETHYL FUMARATE
     Route: 048
     Dates: start: 20220202, end: 20220210
  3. Amitril (Amitriptyline) [Concomitant]
     Indication: Anxiety
     Route: 065
     Dates: end: 2020
  4. ESCITALOPRAM OXALATE [Concomitant]
     Active Substance: ESCITALOPRAM OXALATE
     Indication: Anxiety
     Route: 065
     Dates: end: 202101
  5. ALPRAZOLAM [Concomitant]
     Active Substance: ALPRAZOLAM
     Indication: Insomnia
     Route: 065
     Dates: end: 202101
  6. Venlift (Venlafaxine) [Concomitant]
     Indication: Product used for unknown indication
     Route: 065

REACTIONS (6)
  - Rash pustular [Unknown]
  - Swelling face [Unknown]
  - Pain of skin [Recovered/Resolved]
  - Insomnia [Unknown]
  - Flushing [Recovered/Resolved]
  - Gastrointestinal disorder [Recovered/Resolved]

NARRATIVE: CASE EVENT DATE: 20211201
